FAERS Safety Report 7045866-4 (Version None)
Quarter: 2010Q4

REPORT INFORMATION
  Report Type: 
  Country: None (occurrence: None)
  Receive Date: 20101014
  Receipt Date: 20101004
  Transmission Date: 20110411
  Serious: Yes (Other)
  Sender: FDA-Public Use
  Company Number: US-SANOFI-AVENTIS-2010SA061093

PATIENT
  Age: 66 Year
  Sex: Male

DRUGS (2)
  1. SOLOSTAR [Suspect]
     Route: 058
  2. LANTUS [Suspect]
     Dosage: DOSE:68 UNIT(S)
     Route: 058

REACTIONS (2)
  - DEVICE MALFUNCTION [None]
  - RETINOPATHY [None]
